FAERS Safety Report 5773382-6 (Version None)
Quarter: 2008Q2

REPORT INFORMATION
  Report Type: 
  Country: None (occurrence: None)
  Receive Date: 20080616
  Receipt Date: 20080609
  Transmission Date: 20081010
  Serious: Yes (Other)
  Sender: FDA-Public Use
  Company Number: US-BAYER-200821256NA

PATIENT
  Age: 56 Year
  Sex: Male

DRUGS (7)
  1. CAMPATH [Suspect]
     Indication: DRUG USE FOR UNKNOWN INDICATION
     Dates: start: 20080121, end: 20080506
  2. DEXAMETHASONE TAB [Concomitant]
     Dates: start: 20080121, end: 20080506
  3. BENADRYL [Concomitant]
     Dates: start: 20080121, end: 20080506
  4. TYLENOL [Concomitant]
     Dates: start: 20080121, end: 20080506
  5. CLONAZEPAM [Concomitant]
     Dosage: TOTAL DAILY DOSE: 2 MG
     Route: 048
  6. HYDROCODONE BITARTRATE AND ACETAMINOPHEN [Concomitant]
     Indication: PAIN
     Route: 048
  7. TRAMADOL HCL [Concomitant]
     Route: 048

REACTIONS (1)
  - RETINAL DETACHMENT [None]
